FAERS Safety Report 9281843 (Version 21)
Quarter: 2015Q4

REPORT INFORMATION
  Report Type: Report from Study
  Country: CA (occurrence: CA)
  Receive Date: 20130510
  Receipt Date: 20151110
  Transmission Date: 20160305
  Serious: Yes (Hospitalization, Other)
  Sender: FDA-Public Use
  Company Number: CA-ROCHE-1146900

PATIENT
  Age: 49 Year
  Sex: Female
  Weight: 72 kg

DRUGS (16)
  1. FOLIC ACID. [Concomitant]
     Active Substance: FOLIC ACID
  2. METHOTREXATE [Concomitant]
     Active Substance: METHOTREXATE
  3. ACTEMRA [Suspect]
     Active Substance: TOCILIZUMAB
     Indication: RHEUMATOID ARTHRITIS
     Dosage: MOST RECENT DOSE OF TOCILIZUMAB WAS ON 15/JAN/2013
     Route: 042
     Dates: start: 20120425
  4. HYDROCHLOROTHIAZIDE. [Concomitant]
     Active Substance: HYDROCHLOROTHIAZIDE
  5. OMEPRAZOLE. [Concomitant]
     Active Substance: OMEPRAZOLE
  6. ACTEMRA [Suspect]
     Active Substance: TOCILIZUMAB
     Route: 042
     Dates: start: 20150514
  7. ACTONEL [Concomitant]
     Active Substance: RISEDRONATE SODIUM
  8. CLINDAMYCIN [Suspect]
     Active Substance: CLINDAMYCIN\CLINDAMYCIN PHOSPHATE
     Indication: DENTAL CARE
     Route: 065
  9. CELEBREX [Concomitant]
     Active Substance: CELECOXIB
  10. SIMPONI [Concomitant]
     Active Substance: GOLIMUMAB
  11. RAMIPRIL. [Concomitant]
     Active Substance: RAMIPRIL
  12. PREDNISONE. [Concomitant]
     Active Substance: PREDNISONE
  13. ACTEMRA [Suspect]
     Active Substance: TOCILIZUMAB
     Indication: RHEUMATOID FACTOR POSITIVE
     Route: 042
     Dates: start: 20120524
  14. ACETAMINOPHEN\TRAMADOL HYDROCHLORIDE [Concomitant]
     Active Substance: ACETAMINOPHEN\TRAMADOL HYDROCHLORIDE
  15. ACTEMRA [Suspect]
     Active Substance: TOCILIZUMAB
     Route: 042
     Dates: start: 20140320
  16. TYLENOL [Concomitant]
     Active Substance: ACETAMINOPHEN

REACTIONS (20)
  - Vomiting [Unknown]
  - Herpes zoster [Recovered/Resolved]
  - Joint swelling [Not Recovered/Not Resolved]
  - Eye pain [Unknown]
  - Toothache [Recovered/Resolved]
  - Infection [Unknown]
  - Rheumatoid arthritis [Not Recovered/Not Resolved]
  - Wound infection [Recovered/Resolved]
  - Joint dislocation [Recovered/Resolved]
  - Limb injury [Unknown]
  - Contusion [Not Recovered/Not Resolved]
  - Fall [Unknown]
  - Wound complication [Not Recovered/Not Resolved]
  - Gastroenteritis viral [Unknown]
  - Nasopharyngitis [Not Recovered/Not Resolved]
  - Headache [Unknown]
  - Infected skin ulcer [Recovered/Resolved]
  - Arthropathy [Unknown]
  - Infusion related reaction [Unknown]
  - Tooth disorder [Unknown]

NARRATIVE: CASE EVENT DATE: 20121009
